FAERS Safety Report 10218880 (Version 1)
Quarter: 2014Q2

REPORT INFORMATION
  Report Type: Spontaneous
  Country: US (occurrence: None)
  Receive Date: 20140604
  Receipt Date: 20140604
  Transmission Date: 20141212
  Serious: Yes (Other)
  Sender: FDA-Public Use
  Company Number: None

PATIENT
  Age: 63 Year
  Sex: Female

DRUGS (1)
  1. ATIVAN GENERIC [Suspect]
     Indication: ANXIETY
     Dosage: LIFE, ATIVAN 1 MG, BID, ORAL
     Route: 048

REACTIONS (2)
  - Product substitution issue [None]
  - Drug intolerance [None]
